FAERS Safety Report 17263963 (Version 1)
Quarter: 2020Q1

REPORT INFORMATION
  Report Type: Spontaneous
  Country: FR (occurrence: FR)
  Receive Date: 20200113
  Receipt Date: 20200113
  Transmission Date: 20200409
  Serious: Yes (Death)
  Sender: FDA-Public Use
  Company Number: FR-MYLANLABS-2020M1005118

PATIENT
  Sex: Male
  Weight: 1.83 kg

DRUGS (1)
  1. EPINEPHRINE. [Suspect]
     Active Substance: EPINEPHRINE
     Indication: RESUSCITATION
     Dosage: 10 MICROGRAM/KILOGRAM, UMBILICAL VENOUS CATHETER
     Route: 050

REACTIONS (4)
  - Drug ineffective [Unknown]
  - Product use issue [Unknown]
  - Incorrect route of product administration [Unknown]
  - Death neonatal [Fatal]
